FAERS Safety Report 10215066 (Version 2)
Quarter: 2014Q2

REPORT INFORMATION
  Report Type: Other
  Country: CA (occurrence: CA)
  Receive Date: 20140603
  Receipt Date: 20140603
  Transmission Date: 20141212
  Serious: Yes (Hospitalization, Other)
  Sender: FDA-Public Use
  Company Number: CA-GSKPPD-2014GSK012318

PATIENT
  Sex: Male

DRUGS (6)
  1. AVANDIA [Suspect]
     Indication: DIABETES MELLITUS
     Dosage: DATES OF AVANDIA USE COULD NOT BE CONFIRMED IN RECORDS REVIEWED.
     Route: 048
  2. COREG [Concomitant]
     Route: 048
  3. ALDACTONE [Concomitant]
     Route: 048
  4. ASPIRIN [Concomitant]
     Route: 048
  5. NITRODUR PATCH [Concomitant]
  6. VASOTEC [Concomitant]

REACTIONS (4)
  - Myocardial infarction [None]
  - Coronary artery disease [None]
  - Left ventricular dysfunction [None]
  - Cardiac failure congestive [Recovered/Resolved]
